FAERS Safety Report 9598707 (Version 1)
Quarter: 2013Q4

REPORT INFORMATION
  Report Type: Spontaneous
  Country: US (occurrence: US)
  Receive Date: 20131004
  Receipt Date: 20131004
  Transmission Date: 20140711
  Serious: No
  Sender: FDA-Public Use
  Company Number: US-AMGEN-USASP2013025858

PATIENT
  Age: 41 Year
  Sex: Male
  Weight: 96.15 kg

DRUGS (7)
  1. ENBREL [Suspect]
     Indication: PRODUCT USED FOR UNKNOWN INDICATION
     Dosage: 50 MG, QWK
     Route: 058
  2. SIMVASTATIN [Concomitant]
     Dosage: 200 MG, UNK
  3. LEVEMIR [Concomitant]
     Dosage: UNK
  4. ENAPRIL [Concomitant]
     Dosage: 10 MG, UNK
  5. GLIPIZIDE [Concomitant]
     Dosage: 10 MG, UNK
  6. ASPIRIN [Concomitant]
     Dosage: 81 MG, UNK
  7. MULTIVIT                           /07504101/ [Concomitant]
     Dosage: UNK

REACTIONS (1)
  - Sinusitis [Unknown]
